FAERS Safety Report 10798434 (Version 3)
Quarter: 2018Q4

REPORT INFORMATION
  Report Type: Spontaneous
  Country: JP (occurrence: JP)
  Receive Date: 20150216
  Receipt Date: 20181206
  Transmission Date: 20190204
  Serious: Yes (Death, Hospitalization, Other)
  Sender: FDA-Public Use
  Company Number: PHHY2014JP169211

PATIENT
  Age: 91 Year
  Sex: Female

DRUGS (2)
  1. EXELON PATCH [Suspect]
     Active Substance: RIVASTIGMINE
     Indication: DEMENTIA ALZHEIMER^S TYPE
     Dosage: 6.9 MG/24HOURS (13.5 MG DAILY RIVASTIGMINE BASE, PATCH 7.5)
     Route: 062
     Dates: start: 20120522
  2. EXELON PATCH [Suspect]
     Active Substance: RIVASTIGMINE
     Dosage: 9.5 MG/24HOURS (18 MG DAILY RIVASTIGMINE BASE, PATCH 10)
     Route: 062
     Dates: start: 20120924

REACTIONS (5)
  - Fall [Unknown]
  - Pancreatic carcinoma [Fatal]
  - General physical health deterioration [Fatal]
  - Femur fracture [Recovered/Resolved with Sequelae]
  - Application site reaction [Recovering/Resolving]

NARRATIVE: CASE EVENT DATE: 20120924
